FAERS Safety Report 19470392 (Version 1)
Quarter: 2021Q2

REPORT INFORMATION
  Report Type: Spontaneous
  Country: US (occurrence: US)
  Receive Date: 20210629
  Receipt Date: 20210629
  Transmission Date: 20210717
  Serious: Yes (Hospitalization, Other)
  Sender: FDA-Public Use
  Company Number: US-AMGEN-USASP2021096844

PATIENT
  Age: 58 Year
  Sex: Male

DRUGS (1)
  1. INFLIXIMAB [Suspect]
     Active Substance: INFLIXIMAB
     Indication: CROHN^S DISEASE
     Dosage: 100 MILLIGRAM, QMO
     Route: 042

REACTIONS (3)
  - Staphylococcal sepsis [Recovered/Resolved]
  - Anal abscess [Recovered/Resolved]
  - Perirectal abscess [Recovered/Resolved]
